FAERS Safety Report 10515741 (Version 1)
Quarter: 2014Q4

REPORT INFORMATION
  Report Type: Spontaneous
  Country: FR (occurrence: FR)
  Receive Date: 20141014
  Receipt Date: 20141014
  Transmission Date: 20150528
  Serious: Yes (Death, Life-Threatening, Hospitalization)
  Sender: FDA-Public Use
  Company Number: FR-PFIZER INC-2014279544

PATIENT
  Age: 83 Year
  Sex: Male

DRUGS (3)
  1. CELEBREX [Suspect]
     Active Substance: CELECOXIB
     Dosage: 200 MG, 2X/DAY
     Route: 048
  2. MODECATE [Suspect]
     Active Substance: FLUPHENAZINE DECANOATE
     Indication: PSYCHOTIC DISORDER
     Dosage: 1 DF, MONTHLY
     Route: 030
     Dates: end: 20140608
  3. PARKINANE LP [Suspect]
     Active Substance: TRIHEXYPHENIDYL HYDROCHLORIDE
     Dosage: 5 MG, 1X/DAY
     Route: 048

REACTIONS (3)
  - Ascites [Fatal]
  - Intestinal ischaemia [Fatal]
  - Faecaloma [Fatal]

NARRATIVE: CASE EVENT DATE: 20140608
